FAERS Safety Report 11005798 (Version 1)
Quarter: 2015Q1

REPORT INFORMATION
  Report Type: Spontaneous
  Country: US (occurrence: None)
  Receive Date: 20150312
  Receipt Date: 20150312
  Transmission Date: 20150721
  Serious: Yes (Life-Threatening, Hospitalization, Other)
  Sender: FDA-Public Use
  Company Number: ADR-2015-00399

PATIENT
  Sex: Male

DRUGS (2)
  1. BACLOFEN ORAL [Suspect]
     Active Substance: BACLOFEN
  2. BACLOFEN INTRATHECAL [Suspect]
     Active Substance: BACLOFEN
     Indication: MUSCLE SPASTICITY

REACTIONS (11)
  - Diplopia [None]
  - Headache [None]
  - Therapeutic response decreased [None]
  - Blood pressure decreased [None]
  - Muscle spasticity [None]
  - Heart rate decreased [None]
  - Overdose [None]
  - Cardio-respiratory arrest [None]
  - Drug withdrawal syndrome [None]
  - Dizziness [None]
  - Somnolence [None]
